FAERS Safety Report 13710852 (Version 5)
Quarter: 2018Q1

REPORT INFORMATION
  Report Type: Report from Study
  Country: TR (occurrence: TR)
  Receive Date: 20170703
  Receipt Date: 20180115
  Transmission Date: 20180508
  Serious: Yes (Death, Life-Threatening, Hospitalization)
  Sender: FDA-Public Use
  Company Number: TR-ROCHE-1932955

PATIENT
  Age: 76 Year
  Sex: Male
  Weight: 78.3 kg

DRUGS (22)
  1. ATORVASTATIN CALCIUM. [Concomitant]
     Active Substance: ATORVASTATIN CALCIUM
     Indication: HYPERCHOLESTEROLAEMIA
     Route: 048
     Dates: end: 20170520
  2. DILTIAZEM HCL [Concomitant]
     Active Substance: DILTIAZEM HYDROCHLORIDE
     Route: 048
     Dates: end: 20170512
  3. ATEZOLIZUMAB. [Suspect]
     Active Substance: ATEZOLIZUMAB
     Indication: TRANSITIONAL CELL CARCINOMA
     Dosage: HE RECEIVED HIS MOST RECENT DOSE OF ATEZOLIZUMAB PRIOR TO EVENT ONSET ON 04/MAY/2017.
     Route: 042
     Dates: start: 20170504
  4. CARBOPLATIN. [Suspect]
     Active Substance: CARBOPLATIN
     Indication: TRANSITIONAL CELL CARCINOMA
     Dosage: HE RECEIVED HIS MOST RECENT DOSE OF CARBOPLATIN (397.4MG) PRIOR TO EVENT ONSET ON 04/MAY/2017.?DOSE
     Route: 042
     Dates: start: 20170504
  5. DILTIAZEM HCL [Concomitant]
     Active Substance: DILTIAZEM HYDROCHLORIDE
     Route: 048
     Dates: start: 20170513, end: 20170618
  6. ISOSORBIDE-5-MONONITRATE [Concomitant]
     Active Substance: ISOSORBIDE MONONITRATE
     Route: 048
     Dates: end: 20170618
  7. TICAGRELOR. [Concomitant]
     Active Substance: TICAGRELOR
     Route: 048
     Dates: end: 20170512
  8. TRIMETAZIDINE [Concomitant]
     Active Substance: TRIMETAZIDINE
     Route: 048
     Dates: end: 20170618
  9. MEROPENEM. [Concomitant]
     Active Substance: MEROPENEM
     Route: 042
     Dates: start: 20170523, end: 20170603
  10. METOPROLOL. [Concomitant]
     Active Substance: METOPROLOL
     Route: 048
     Dates: end: 20170509
  11. METRONIDAZOLE. [Concomitant]
     Active Substance: METRONIDAZOLE
     Route: 042
     Dates: start: 20170507, end: 20170603
  12. ACETYLSALICYLIC ACID [Concomitant]
     Active Substance: ASPIRIN
     Route: 048
     Dates: end: 20170618
  13. SACCHAROMYCES BOULARDII [Concomitant]
     Active Substance: SACCHAROMYCES CEREVISIAE
     Route: 048
     Dates: end: 20170509
  14. RANITIDINE. [Concomitant]
     Active Substance: RANITIDINE
     Indication: DYSPNOEA
     Route: 065
     Dates: start: 20170523, end: 20170618
  15. PANTOPRAZOLE [Concomitant]
     Active Substance: PANTOPRAZOLE
     Indication: ULCER
     Route: 048
  16. REPAGLINIDE. [Concomitant]
     Active Substance: REPAGLINIDE
     Route: 048
     Dates: start: 20170510, end: 20170519
  17. HUMAN ALBUMIN [Concomitant]
     Active Substance: ALBUMIN HUMAN
     Route: 042
     Dates: start: 20170520, end: 20170520
  18. METOPROLOL. [Concomitant]
     Active Substance: METOPROLOL
     Route: 048
     Dates: start: 20170523, end: 20170618
  19. MEROPENEM. [Concomitant]
     Active Substance: MEROPENEM
     Route: 042
     Dates: start: 20170517, end: 20170517
  20. GEMCITABINE [Suspect]
     Active Substance: GEMCITABINE\GEMCITABINE HYDROCHLORIDE
     Indication: TRANSITIONAL CELL CARCINOMA
     Dosage: HE RECEIVED HIS MOST RECENT DOSE OF GEMCITABINE (1900 MG/M2) PRIOR TO EVENT ONSET ON 04/MAY/2017.?FR
     Route: 042
     Dates: start: 20170504
  21. PANTOPRAZOLE [Concomitant]
     Active Substance: PANTOPRAZOLE
     Indication: PNEUMONIA
     Route: 042
     Dates: start: 20170507, end: 20170520
  22. DIGOKSIN [Concomitant]
     Active Substance: DIGOXIN
     Route: 048
     Dates: start: 20170516, end: 20170520

REACTIONS (4)
  - Dyspnoea [Fatal]
  - Supraventricular tachycardia [Recovered/Resolved]
  - Pneumonia [Recovered/Resolved]
  - Renal impairment [Recovered/Resolved]

NARRATIVE: CASE EVENT DATE: 20170507
